FAERS Safety Report 10559590 (Version 6)
Quarter: 2015Q1

REPORT INFORMATION
  Report Type: Spontaneous
  Country: US (occurrence: US)
  Receive Date: 20141103
  Receipt Date: 20150126
  Transmission Date: 20150720
  Serious: No
  Sender: FDA-Public Use
  Company Number: US-PFIZER INC-2014299606

PATIENT
  Age: 82 Year
  Sex: Female

DRUGS (8)
  1. DEPO-MEDROL [Suspect]
     Active Substance: METHYLPREDNISOLONE ACETATE
     Indication: MUSCULOSKELETAL PAIN
     Dosage: 80 MG, (ONE TIME)
     Dates: start: 20140708, end: 20140708
  2. DEPO-MEDROL [Suspect]
     Active Substance: METHYLPREDNISOLONE ACETATE
     Indication: OSTEOARTHRITIS
  3. DEPO-MEDROL [Suspect]
     Active Substance: METHYLPREDNISOLONE ACETATE
     Indication: BURSITIS
  4. FIORINAL [Concomitant]
     Active Substance: ASPIRIN\BUTALBITAL\CAFFEINE
     Indication: HEADACHE
     Dosage: UNK, (PRN)
  5. DEPO-MEDROL [Suspect]
     Active Substance: METHYLPREDNISOLONE ACETATE
     Indication: JOINT INJURY
  6. DEPO-MEDROL [Suspect]
     Active Substance: METHYLPREDNISOLONE ACETATE
     Indication: MUSCLE INJURY
  7. CORTISONE [Suspect]
     Active Substance: CORTISONE\HYDROCORTISONE
     Dosage: UNK, SINGLE
     Dates: start: 20140708, end: 20140708
  8. ATIVAN [Concomitant]
     Active Substance: LORAZEPAM
     Indication: INSOMNIA

REACTIONS (11)
  - Anxiety [Not Recovered/Not Resolved]
  - Immune system disorder [Not Recovered/Not Resolved]
  - Pain [Not Recovered/Not Resolved]
  - Medication residue present [Unknown]
  - Malaise [Not Recovered/Not Resolved]
  - Emotional disorder [Not Recovered/Not Resolved]
  - Myalgia [Recovered/Resolved]
  - Insomnia [Not Recovered/Not Resolved]
  - Drug ineffective [Recovered/Resolved]
  - Fatigue [Not Recovered/Not Resolved]
  - Middle insomnia [Not Recovered/Not Resolved]

NARRATIVE: CASE EVENT DATE: 20140712
